FAERS Safety Report 13933064 (Version 1)
Quarter: 2017Q3

REPORT INFORMATION
  Report Type: Spontaneous
  Country: US (occurrence: US)
  Receive Date: 20170904
  Receipt Date: 20170904
  Transmission Date: 20171127
  Serious: Yes (Other)
  Sender: FDA-Public Use
  Company Number: US-VERICEL CORPORATION-VCEL-2017-000765

PATIENT
  Sex: Male

DRUGS (1)
  1. MACI [Suspect]
     Active Substance: AUTOLOGOUS CULTURED CHONDROCYTES\SUS SCROFA COLLAGEN
     Indication: CARTILAGE INJURY
     Dosage: UNK
     Route: 065
     Dates: start: 20170711

REACTIONS (5)
  - Skin infection [Recovering/Resolving]
  - Cellulitis [Unknown]
  - Joint effusion [Unknown]
  - Folliculitis [Unknown]
  - Implant site pain [Unknown]

NARRATIVE: CASE EVENT DATE: 2017
